FAERS Safety Report 4962305-5 (Version None)
Quarter: 2006Q2

REPORT INFORMATION
  Report Type: 
  Country: None (occurrence: None)
  Receive Date: 20060404
  Receipt Date: 20060201
  Transmission Date: 20061013
  Serious: No
  Sender: FDA-Public Use
  Company Number: US-BRISTOL-MYERS SQUIBB COMPANY-13268354

PATIENT
  Age: 88 Year
  Sex: Female
  Weight: 56 kg

DRUGS (4)
  1. HYDREA [Suspect]
     Indication: PLATELET COUNT INCREASED
  2. TOPROL-XL [Concomitant]
  3. EVISTA [Concomitant]
  4. ASPIRIN [Concomitant]

REACTIONS (1)
  - ANOREXIA [None]
